FAERS Safety Report 19362550 (Version 1)
Quarter: 2021Q2

REPORT INFORMATION
  Report Type: Report from Study
  Country: None (occurrence: US)
  Receive Date: 20210603
  Receipt Date: 20210603
  Transmission Date: 20210717
  Serious: Yes (Other)
  Sender: FDA-Public Use
  Company Number: US-ABBVIE-21K-163-3928337-00

PATIENT
  Sex: Female

DRUGS (1)
  1. HUMIRA [Suspect]
     Active Substance: ADALIMUMAB
     Indication: PSORIATIC ARTHROPATHY
     Dosage: CITRATE FREE
     Route: 058

REACTIONS (9)
  - Eye inflammation [Recovering/Resolving]
  - Eye irritation [Recovering/Resolving]
  - Arthritis [Recovering/Resolving]
  - Pain in extremity [Recovering/Resolving]
  - Psoriatic arthropathy [Recovering/Resolving]
  - Nerve compression [Unknown]
  - Dactylitis [Not Recovered/Not Resolved]
  - Inflammation [Recovering/Resolving]
  - Fatigue [Recovering/Resolving]

NARRATIVE: CASE EVENT DATE: 2001
